FAERS Safety Report 7342701-1 (Version None)
Quarter: 2011Q1

REPORT INFORMATION
  Report Type: 
  Country: None (occurrence: None)
  Receive Date: 20110310
  Receipt Date: 20110309
  Transmission Date: 20110831
  Serious: Yes (Death, Hospitalization, Other)
  Sender: FDA-Public Use
  Company Number: SE-PFIZER INC-2011038097

PATIENT
  Age: 85 Year
  Sex: Male

DRUGS (1)
  1. TOLTERODINE TARTRATE [Suspect]
     Dosage: UNK
     Route: 048
     Dates: start: 20110109

REACTIONS (6)
  - DEATH [None]
  - COGNITIVE DISORDER [None]
  - FATIGUE [None]
  - BACTERIAL INFECTION [None]
  - MYOCARDIAL INFARCTION [None]
  - URINARY RETENTION [None]
